FAERS Safety Report 6382104-X (Version None)
Quarter: 2009Q3

REPORT INFORMATION
  Report Type: 
  Country: None (occurrence: None)
  Receive Date: 20090930
  Receipt Date: 20090924
  Transmission Date: 20100115
  Serious: Yes (Death, Hospitalization)
  Sender: FDA-Public Use
  Company Number: FR-BRISTOL-MYERS SQUIBB COMPANY-14682983

PATIENT
  Age: 84 Year
  Sex: Male

DRUGS (6)
  1. ERBITUX [Suspect]
     Indication: COLORECTAL CANCER
     Route: 042
     Dates: start: 20090216, end: 20090330
  2. FLUOROURACIL [Suspect]
     Indication: COLORECTAL CANCER
     Dosage: SOLUTION FOR INJECTION
     Route: 042
     Dates: start: 20090216, end: 20090330
  3. CAMPTOSAR [Suspect]
     Indication: COLORECTAL CANCER
     Dosage: SOLUTION FOR INJ
     Route: 042
     Dates: start: 20090216, end: 20090330
  4. ICAZ [Concomitant]
  5. ALLOPURINOL [Concomitant]
  6. LIPANTHYL [Concomitant]

REACTIONS (8)
  - ASTHENIA [None]
  - DECREASED APPETITE [None]
  - DIARRHOEA [None]
  - MOUTH ULCERATION [None]
  - MULTI-ORGAN FAILURE [None]
  - NEUTROPENIA [None]
  - STOMATITIS [None]
  - VOMITING [None]
